FAERS Safety Report 24293610 (Version 1)
Quarter: 2024Q3

REPORT INFORMATION
  Report Type: Spontaneous
  Country: US (occurrence: None)
  Receive Date: 20240906
  Receipt Date: 20240906
  Transmission Date: 20241017
  Serious: No
  Sender: DOMPE FARMACEUTICI
  Company Number: US-FARMAPROD-202308-202402-0400

PATIENT
  Age: 57 Year
  Sex: Female

DRUGS (16)
  1. OXERVATE [Suspect]
     Active Substance: CENEGERMIN-BKBJ
     Indication: Neurotrophic keratopathy
     Route: 047
     Dates: start: 20240204
  2. REFRESH CLASSIC [Concomitant]
     Active Substance: POLYVINYL ALCOHOL\POVIDONE
  3. REFRESH P.M. [Concomitant]
     Active Substance: MINERAL OIL\PETROLATUM
     Dosage: 42.5-57.3%
  4. CALCIUM\CHOLECALCIFEROL [Concomitant]
     Active Substance: CALCIUM\CHOLECALCIFEROL
     Dosage: 600MG-12.5
  5. SYNTHROID [Concomitant]
     Active Substance: LEVOTHYROXINE SODIUM
  6. FLUTICASONE PROPIONATE [Concomitant]
     Active Substance: FLUTICASONE PROPIONATE
  7. B12 ACTIVE [Concomitant]
  8. BUSPIRONE HCL [Concomitant]
     Active Substance: BUSPIRONE HYDROCHLORIDE
  9. DIAZEPAM [Concomitant]
     Active Substance: DIAZEPAM
  10. FERROUS SULFATE [Concomitant]
     Active Substance: FERROUS SULFATE
     Dosage: 325(65)
  11. GABAPENTIN [Concomitant]
     Active Substance: GABAPENTIN
  12. GABAPENTIN [Concomitant]
     Active Substance: GABAPENTIN
  13. MONTELUKAST SODIUM [Concomitant]
     Active Substance: MONTELUKAST\MONTELUKAST SODIUM
  14. MYFORTIC [Concomitant]
     Active Substance: MYCOPHENOLATE SODIUM
  15. HYDROXYCHLOROQUINE SULFATE [Concomitant]
     Active Substance: HYDROXYCHLOROQUINE SULFATE
  16. OMEPRAZOLE [Concomitant]
     Active Substance: OMEPRAZOLE

REACTIONS (2)
  - Dry eye [Unknown]
  - Device use issue [Unknown]

NARRATIVE: CASE EVENT DATE: 20240204
